FAERS Safety Report 7916213 (Version 8)
Quarter: 2014Q2

REPORT INFORMATION
  Report Type: Spontaneous
  Country: DK (occurrence: DK)
  Receive Date: 20110427
  Receipt Date: 20140417
  Transmission Date: 20141212
  Serious: Yes (Death, Hospitalization)
  Sender: FDA-Public Use
  Company Number: DK-JNJFOC-20110405162

PATIENT
  Age: 7 Year
  Sex: Male
  Weight: 26 kg

DRUGS (10)
  1. REMICADE [Suspect]
     Indication: UVEITIS
     Dosage: STRENGTH 100 MG, INITIATED 5 MONTHS AGO
     Route: 042
     Dates: start: 20101027
  2. REMICADE [Suspect]
     Indication: UVEITIS
     Dosage: STRENGTH 100 MG, INITIATED 5 MONTHS AGO
     Route: 042
     Dates: start: 20110110, end: 20110309
  3. METHOTREXATE [Suspect]
     Indication: UVEITIS
     Route: 048
     Dates: start: 20101110
  4. PREDNISOLONE [Concomitant]
     Indication: INTRAOCULAR PRESSURE INCREASED
     Dates: start: 20100610, end: 20101210
  5. PREDNISOLONE [Concomitant]
     Indication: UVEITIS
     Dates: start: 20100610, end: 20101210
  6. COSOPT [Concomitant]
     Indication: GLAUCOMA
     Route: 047
     Dates: start: 20110110, end: 20110309
  7. COSOPT [Concomitant]
     Indication: UVEITIS
     Route: 047
     Dates: start: 20110110, end: 20110309
  8. MYDRIACYL [Concomitant]
     Indication: UVEITIS
     Route: 047
     Dates: start: 20100427, end: 20110309
  9. XALATAN [Concomitant]
     Indication: GLAUCOMA
     Route: 047
     Dates: start: 20100427, end: 20110309
  10. XALATAN [Concomitant]
     Indication: UVEITIS
     Route: 047
     Dates: start: 20100427, end: 20110309

REACTIONS (4)
  - Varicella zoster pneumonia [Fatal]
  - Varicella [Fatal]
  - Encephalitis [Fatal]
  - Respiratory failure [Fatal]
